FAERS Safety Report 7811358-5 (Version None)
Quarter: 2011Q4

REPORT INFORMATION
  Report Type: 
  Country: None (occurrence: None)
  Receive Date: 20111013
  Receipt Date: 20111011
  Transmission Date: 20120403
  Serious: Yes (Death)
  Sender: FDA-Public Use
  Company Number: JP-SANOFI-AVENTIS-2011SA066621

PATIENT
  Age: 69 Year
  Sex: Male

DRUGS (3)
  1. FLUOROURACIL [Concomitant]
     Dosage: DOSE: 350
     Dates: start: 20110912, end: 20110914
  2. TAXOTERE [Suspect]
     Dosage: DOSE: 100MG/BODY
     Route: 065
     Dates: start: 20110914, end: 20110914
  3. CISPLATIN [Concomitant]
     Dates: start: 20110912

REACTIONS (1)
  - DEATH [None]
